FAERS Safety Report 6245991-1 (Version None)
Quarter: 2009Q2

REPORT INFORMATION
  Report Type: 
  Country: None (occurrence: None)
  Receive Date: 20090626
  Receipt Date: 20081118
  Transmission Date: 20091009
  Serious: No
  Sender: FDA-Public Use
  Company Number: A0750546A

PATIENT
  Age: 45 Year
  Sex: Female
  Weight: 79.1 kg

DRUGS (4)
  1. IMITREX [Suspect]
     Indication: MIGRAINE
     Dosage: 100MG UNKNOWN
     Route: 048
     Dates: end: 20081001
  2. IBUPROFEN [Concomitant]
  3. TORADOL [Concomitant]
  4. COMPAZINE [Concomitant]

REACTIONS (4)
  - ADVERSE DRUG REACTION [None]
  - DRUG INEFFECTIVE [None]
  - ILL-DEFINED DISORDER [None]
  - RAYNAUD'S PHENOMENON [None]
